FAERS Safety Report 7716626-3 (Version None)
Quarter: 2011Q3

REPORT INFORMATION
  Report Type: 
  Country: None (occurrence: None)
  Receive Date: 20110829
  Receipt Date: 20110825
  Transmission Date: 20111222
  Serious: Yes (Other)
  Sender: FDA-Public Use
  Company Number: US-PFIZER INC-2011198692

PATIENT
  Sex: Female

DRUGS (3)
  1. ZOLOFT [Concomitant]
     Dosage: UNK
  2. LYRICA [Suspect]
     Dosage: UNK
     Dates: start: 20110801, end: 20110801
  3. SEROQUEL [Concomitant]
     Dosage: UNK

REACTIONS (2)
  - SELF INJURIOUS BEHAVIOUR [None]
  - MENTAL DISORDER [None]
